FAERS Safety Report 9339767 (Version 2)
Quarter: 2013Q3

REPORT INFORMATION
  Report Type: Spontaneous
  Country: US (occurrence: US)
  Receive Date: 20130610
  Receipt Date: 20130910
  Transmission Date: 20140515
  Serious: Yes (Other)
  Sender: FDA-Public Use
  Company Number: US-ASTELLAS-2013US003325

PATIENT
  Age: 79 Year
  Sex: Male
  Weight: 96 kg

DRUGS (12)
  1. XTANDI [Suspect]
     Indication: NEOPLASM PROSTATE
     Dosage: 160 MG, UID/QD
     Route: 048
     Dates: start: 20121012
  2. XTANDI [Suspect]
     Dosage: 160 MG, UID/QD
     Route: 048
     Dates: start: 20121012
  3. PROCRIT                            /00928302/ [Concomitant]
     Indication: ANAEMIA
     Dosage: UNK
     Route: 065
  4. XGEVA [Concomitant]
     Indication: BONE DISORDER
     Dosage: 120 MG EVERY 28 DAYS
     Route: 040
  5. LUPRON [Concomitant]
     Indication: PROSTATE CANCER
     Dosage: 22 MG EVERY THREE MONTHS
     Route: 030
  6. FLOMAX                             /01280302/ [Concomitant]
     Indication: PRODUCT USED FOR UNKNOWN INDICATION
     Dosage: 0.4 MG, UID/QD
     Route: 048
  7. CARDURA [Concomitant]
     Indication: PRODUCT USED FOR UNKNOWN INDICATION
     Dosage: 4 MG, TID
     Route: 065
  8. ALTACE [Concomitant]
     Indication: PRODUCT USED FOR UNKNOWN INDICATION
     Dosage: UNK
     Route: 048
  9. EMLA                               /00675501/ [Concomitant]
     Indication: PRODUCT USED FOR UNKNOWN INDICATION
     Dosage: UNK
     Route: 061
  10. LORTAB                             /00607101/ [Concomitant]
     Indication: PRODUCT USED FOR UNKNOWN INDICATION
     Dosage: 5 MG, PRN
     Route: 048
     Dates: start: 20120411
  11. COMPAZINE                          /00013302/ [Concomitant]
     Indication: PRODUCT USED FOR UNKNOWN INDICATION
     Dosage: 10 MG, PRN
     Route: 048
     Dates: start: 20120207
  12. ZOFRAN                             /00955301/ [Concomitant]
     Indication: PRODUCT USED FOR UNKNOWN INDICATION
     Dosage: 8 MG, UNKNOWN/D
     Route: 048
     Dates: start: 20110630

REACTIONS (6)
  - Prostatic specific antigen increased [Not Recovered/Not Resolved]
  - Dizziness [Unknown]
  - Vertigo [Unknown]
  - Back pain [Recovered/Resolved]
  - Musculoskeletal discomfort [Recovered/Resolved]
  - Arthralgia [Recovered/Resolved]
